FAERS Safety Report 5389802-5 (Version None)
Quarter: 2007Q3

REPORT INFORMATION
  Report Type: 
  Country: None (occurrence: None)
  Receive Date: 20070716
  Receipt Date: 20070503
  Transmission Date: 20080115
  Serious: Yes (Death)
  Sender: FDA-Public Use
  Company Number: MPS1-10679

PATIENT
  Age: 22 Year
  Sex: Male

DRUGS (2)
  1. ALDURAZYME [Suspect]
     Indication: MUCOPOLYSACCHARIDOSIS I
     Dates: start: 20010801, end: 20061213
  2. IMMUNOSUPPRESSANT [Concomitant]

REACTIONS (1)
  - CARDIAC FAILURE ACUTE [None]
